FAERS Safety Report 17286684 (Version 1)
Quarter: 2020Q1

REPORT INFORMATION
  Report Type: Spontaneous
  Country: US (occurrence: US)
  Receive Date: 20191231
  Receipt Date: 20191231
  Transmission Date: 20200409
  Serious: No
  Sender: FDA-Public Use
  Company Number: None

PATIENT
  Age: 32 Year
  Sex: Female

DRUGS (1)
  1. MAVYRET [Suspect]
     Active Substance: GLECAPREVIR\PIBRENTASVIR
     Route: 048
     Dates: start: 20191112

REACTIONS (5)
  - Therapy cessation [None]
  - Diarrhoea [None]
  - Nausea [None]
  - Insurance issue [None]
  - Vomiting [None]

NARRATIVE: CASE EVENT DATE: 20191231
